FAERS Safety Report 5333516-4 (Version None)
Quarter: 2007Q2

REPORT INFORMATION
  Report Type: 
  Country: None (occurrence: None)
  Receive Date: 20070524
  Receipt Date: 20070516
  Transmission Date: 20071010
  Serious: Yes (Other)
  Sender: FDA-Public Use
  Company Number: ES-ALLERGAN-0705243US

PATIENT
  Sex: Female

DRUGS (5)
  1. BOTOX [Suspect]
     Indication: BRUXISM
     Dosage: 25 UNITS, SINGLE
     Route: 030
     Dates: start: 20051201, end: 20051201
  2. BOTOX [Suspect]
     Dosage: 65 UNITS, SINGLE
     Route: 030
     Dates: start: 20060301, end: 20060301
  3. SUMIAL [Concomitant]
  4. REXER [Concomitant]
  5. SEDOTIME [Concomitant]

REACTIONS (1)
  - MUSCLE ATROPHY [None]
